FAERS Safety Report 10070096 (Version 1)
Quarter: 2014Q2

REPORT INFORMATION
  Report Type: Spontaneous
  Country: IE (occurrence: None)
  Receive Date: 20140408
  Receipt Date: 20140408
  Transmission Date: 20141212
  Serious: Yes (Other)
  Sender: FDA-Public Use
  Company Number: IE-20140006

PATIENT
  Age: 44 Year
  Sex: 0

DRUGS (3)
  1. DOTAREM (FLA) (GADOTERIC ACID), 13GD033A [Suspect]
     Indication: NUCLEAR MAGNETIC RESONANCE IMAGING BRAIN
     Dosage: 10 ML (10 ML, 1 IN 1 D), INTRAVENOUS (NOT OTHERWISE SEPCIFIED)
     Route: 042
     Dates: start: 20140324, end: 20140324
  2. DOTAREM (FLA) (GADOTERIC ACID), 13GD033A [Suspect]
     Dosage: 10 ML (10 ML, 1 IN 1 D), INTRAVENOUS (NOT OTHERWISE SEPCIFIED)
     Route: 042
     Dates: start: 20140324, end: 20140324
  3. COVERSIL (PERINDOPRIL ERBUMINE) (PERINDOPRIL ERBUMINE) [Concomitant]

REACTIONS (1)
  - Flushing [None]
